FAERS Safety Report 11387805 (Version 1)
Quarter: 2015Q3

REPORT INFORMATION
  Report Type: Spontaneous
  Country: JP (occurrence: JP)
  Receive Date: 20150817
  Receipt Date: 20150817
  Transmission Date: 20151125
  Serious: Yes (Other)
  Sender: FDA-Public Use
  Company Number: JP-PFIZER INC-2015269425

PATIENT
  Age: 67 Year
  Sex: Female

DRUGS (2)
  1. SOLANAX [Suspect]
     Active Substance: ALPRAZOLAM
     Dosage: UNK, 2X/DAY
     Route: 048
  2. SOLANAX [Suspect]
     Active Substance: ALPRAZOLAM
     Dosage: 1 DF, 1X/DAY
     Route: 048

REACTIONS (1)
  - Apnoea [Unknown]
